FAERS Safety Report 14925486 (Version 1)
Quarter: 2018Q2

REPORT INFORMATION
  Report Type: Spontaneous
  Country: US (occurrence: US)
  Receive Date: 20180522
  Receipt Date: 20180522
  Transmission Date: 20180711
  Serious: Yes (Other)
  Sender: FDA-Public Use
  Company Number: US-JNJFOC-20180521341

PATIENT
  Sex: Male
  Weight: 104.33 kg

DRUGS (1)
  1. RISPERDAL CONSTA [Suspect]
     Active Substance: RISPERIDONE
     Indication: SCHIZOPHRENIA
     Route: 030

REACTIONS (8)
  - Suicidal ideation [Recovering/Resolving]
  - Drug ineffective [Unknown]
  - Malaise [Unknown]
  - Corneal thinning [Unknown]
  - Blindness [Unknown]
  - Weight increased [Recovering/Resolving]
  - Feeling abnormal [Unknown]
  - Homicidal ideation [Unknown]
